FAERS Safety Report 6526737-6 (Version None)
Quarter: 2010Q1

REPORT INFORMATION
  Report Type: 
  Country: None (occurrence: None)
  Receive Date: 20100105
  Receipt Date: 20091223
  Transmission Date: 20100710
  Serious: Yes (Hospitalization)
  Sender: FDA-Public Use
  Company Number: HR-JNJFOC-20091204504

PATIENT
  Age: 17 Month
  Sex: Female
  Weight: 11 kg

DRUGS (3)
  1. PARACETAMOL [Suspect]
     Route: 065
  2. PARACETAMOL [Suspect]
     Indication: PYREXIA
     Dosage: TREATED FOR 3 DAYS WITH PRESUMABLY THERAPEUTIC DOSES
     Route: 065
  3. ANTIBIOTIC [Concomitant]
     Indication: URINARY TRACT INFECTION

REACTIONS (5)
  - BRADYCARDIA [None]
  - DRUG TOXICITY [None]
  - HEPATOMEGALY [None]
  - JAUNDICE [None]
  - STUPOR [None]
